FAERS Safety Report 9216249 (Version 6)
Quarter: 2013Q4

REPORT INFORMATION
  Report Type: Spontaneous
  Country: JP (occurrence: None)
  Receive Date: 20130403
  Receipt Date: 20131209
  Transmission Date: 20140711
  Serious: Yes (Hospitalization)
  Sender: FDA-Public Use
  Company Number: AE-SPE-2013-008

PATIENT
  Age: 1 Year
  Sex: Female

DRUGS (6)
  1. MEIACT MS FINE GRANULES (CEFDITOREN PIVOXIL) [Suspect]
     Indication: SINUSITIS
     Route: 048
     Dates: start: 20130225, end: 20130226
  2. ANTIBIOTICS-RESISTANT  LACTIC  ACID  BACTERIAE [Concomitant]
  3. TIPEPIDINE  HIBENZATE [Concomitant]
  4. L-CARBOCISTEINE [Concomitant]
  5. MEQUITAZINE [Concomitant]
  6. TULOBUTEROL [Concomitant]

REACTIONS (13)
  - Depressed level of consciousness [None]
  - Hypoglycaemia [None]
  - Diarrhoea [None]
  - Lip discolouration [None]
  - Peripheral coldness [None]
  - Wheezing [None]
  - Somnolence [None]
  - Ketoacidosis [None]
  - Metabolic acidosis [None]
  - Carnitine decreased [None]
  - Acute sinusitis [None]
  - Vomiting [None]
  - Cough [None]
